FAERS Safety Report 22393686 (Version 1)
Quarter: 2023Q2

REPORT INFORMATION
  Report Type: Spontaneous
  Country: JP (occurrence: JP)
  Receive Date: 20230601
  Receipt Date: 20230601
  Transmission Date: 20230721
  Serious: Yes (Other)
  Sender: FDA-Public Use
  Company Number: JP-PFIZER INC-PV202300094760

PATIENT
  Sex: Male

DRUGS (1)
  1. XALKORI [Suspect]
     Active Substance: CRIZOTINIB
     Dosage: UNK
     Dates: start: 20230216

REACTIONS (4)
  - Constipation [Recovered/Resolved]
  - Subileus [Recovered/Resolved]
  - Renal disorder [Recovering/Resolving]
  - Hepatic function abnormal [Recovering/Resolving]
